FAERS Safety Report 20407481 (Version 1)
Quarter: 2022Q1

REPORT INFORMATION
  Report Type: Spontaneous
  Country: US (occurrence: US)
  Receive Date: 20220131
  Receipt Date: 20220131
  Transmission Date: 20220423
  Serious: Yes (Other)
  Sender: FDA-Public Use
  Company Number: US-ALLERGAN-2203681US

PATIENT
  Sex: Female

DRUGS (1)
  1. UBRELVY [Suspect]
     Active Substance: UBROGEPANT
     Indication: Migraine
     Dosage: 100 MG, PRN
     Dates: start: 202101

REACTIONS (3)
  - Skin cancer [Unknown]
  - Oropharyngeal pain [Unknown]
  - Gastrooesophageal reflux disease [Unknown]
